FAERS Safety Report 21916791 (Version 1)
Quarter: 2023Q1

REPORT INFORMATION
  Report Type: Spontaneous
  Country: BR (occurrence: BR)
  Receive Date: 20230126
  Receipt Date: 20230126
  Transmission Date: 20230418
  Serious: Yes (Other)
  Sender: FDA-Public Use
  Company Number: BR-TAKEDA-2022TUS101491

PATIENT
  Sex: Male

DRUGS (1)
  1. MESALAMINE [Suspect]
     Active Substance: MESALAMINE
     Indication: Abdominal pain
     Dosage: 1600 MILLIGRAM, QD
     Route: 048
     Dates: start: 202203

REACTIONS (11)
  - Glaucoma [Unknown]
  - Pain [Recovering/Resolving]
  - Product colour issue [Unknown]
  - Off label use [Unknown]
  - Drug ineffective for unapproved indication [Recovering/Resolving]
  - Malaise [Recovering/Resolving]
  - Abdominal pain upper [Recovering/Resolving]
  - Blood pressure increased [Unknown]
  - Blood cholesterol [Unknown]
  - Product physical issue [Unknown]
  - Abdominal pain [Recovering/Resolving]
